FAERS Safety Report 7037632-0 (Version None)
Quarter: 2010Q4

REPORT INFORMATION
  Report Type: 
  Country: None (occurrence: None)
  Receive Date: 20101011
  Receipt Date: 20101005
  Transmission Date: 20110411
  Serious: Yes (Death)
  Sender: FDA-Public Use
  Company Number: PHHY2010TN67291

PATIENT

DRUGS (3)
  1. TERBINAFINE [Suspect]
  2. GRISEOFULVIN [Suspect]
  3. FLUCONAZOLE [Suspect]

REACTIONS (2)
  - DISEASE RECURRENCE [None]
  - SEPTIC SHOCK [None]
